FAERS Safety Report 5025098-1 (Version None)
Quarter: 2006Q2

REPORT INFORMATION
  Report Type: 
  Country: None (occurrence: None)
  Receive Date: 20060607
  Receipt Date: 20060603
  Transmission Date: 20061013
  Serious: Yes (Other)
  Sender: FDA-Public Use
  Company Number: 217604

PATIENT
  Age: 15 Year
  Sex: Female
  Weight: 65.6 kg

DRUGS (6)
  1. NUTROPIN AQ [Suspect]
     Indication: HYPOPITUITARISM
     Dosage: QD
     Dates: start: 20040609
  2. SYNTHROID [Concomitant]
     Indication: HYPOPITUITARISM
     Dosage: QD
     Dates: start: 20040609
  3. DDAVP (DESMOPRESSIN ACETATE) [Concomitant]
  4. PREDNISONE TAB [Concomitant]
  5. VIVELLE-DOT [Concomitant]
  6. .. [Concomitant]

REACTIONS (2)
  - JOINT SWELLING [None]
  - PAIN IN EXTREMITY [None]
